FAERS Safety Report 9803499 (Version 3)
Quarter: 2014Q1

REPORT INFORMATION
  Report Type: Report from Study
  Country: DE (occurrence: DE)
  Receive Date: 20140108
  Receipt Date: 20140110
  Transmission Date: 20141002
  Serious: No
  Sender: FDA-Public Use
  Company Number: DE-SA-2013SA131471

PATIENT
  Age: 54 Year
  Sex: Male
  Weight: 75 kg

DRUGS (13)
  1. JEVTANA [Suspect]
     Indication: HORMONE-REFRACTORY PROSTATE CANCER
     Route: 042
     Dates: start: 20131008, end: 20131008
  2. JEVTANA [Suspect]
     Indication: HORMONE-REFRACTORY PROSTATE CANCER
     Route: 042
     Dates: start: 20131121, end: 20131121
  3. NEULASTA [Concomitant]
  4. PAMORELIN [Concomitant]
     Indication: PROSTATE CANCER
     Route: 030
     Dates: start: 20130625
  5. GRANISETRON [Concomitant]
  6. XGEVA [Concomitant]
     Indication: METASTASES TO BONE
     Route: 058
     Dates: start: 20121001
  7. ANALGESICS [Concomitant]
  8. TAVEGIL [Concomitant]
  9. DEXAMETHASONE [Concomitant]
  10. RANITIDINE [Concomitant]
  11. NOVALGIN [Concomitant]
  12. MST [Concomitant]
     Indication: ANALGESIC THERAPY
     Route: 048
     Dates: start: 20131008
  13. MORPHINE SULFATE [Concomitant]
     Indication: ANALGESIC THERAPY
     Route: 048
     Dates: start: 20131121

REACTIONS (1)
  - Bone pain [Recovered/Resolved]
